FAERS Safety Report 10703910 (Version 1)
Quarter: 2015Q1

REPORT INFORMATION
  Report Type: Spontaneous
  Country: BR (occurrence: BR)
  Receive Date: 20150112
  Receipt Date: 20150112
  Transmission Date: 20150721
  Serious: Yes (Death)
  Sender: FDA-Public Use
  Company Number: BR-JNJFOC-20150105306

PATIENT
  Age: 50 Year

DRUGS (9)
  1. DOXORUBICIN [Suspect]
     Active Substance: DOXORUBICIN
     Indication: ACUTE LYMPHOCYTIC LEUKAEMIA
     Dosage: OVER 2 HOURS ON DAY 4
     Route: 042
  2. DEXAMETHASONE. [Suspect]
     Active Substance: DEXAMETHASONE
     Indication: ACUTE LYMPHOCYTIC LEUKAEMIA
     Dosage: ON DAYS 1-4 AND 11 TO 14
     Route: 042
  3. CALCIUM LEUCOVORIN [Suspect]
     Active Substance: LEUCOVORIN CALCIUM
     Indication: ACUTE LYMPHOCYTIC LEUKAEMIA
     Dosage: 50 MG STARTING 12 OR 24 HRS AFTER THE COMPLETION OF MTX (HR 36 OR 48), 15 MG EVERY 6 HRS FOR 8 DOSES
     Route: 042
  4. VINCRISTINE [Suspect]
     Active Substance: VINCRISTINE
     Indication: ACUTE LYMPHOCYTIC LEUKAEMIA
     Dosage: ON DAY 4
     Route: 042
  5. MESNA. [Suspect]
     Active Substance: MESNA
     Indication: ACUTE LYMPHOCYTIC LEUKAEMIA
     Dosage: IV INFUSION FOR 3 DAYS
     Route: 042
  6. CYTARABINE. [Suspect]
     Active Substance: CYTARABINE
     Indication: ACUTE LYMPHOCYTIC LEUKAEMIA
     Dosage: 1G/M2 OVER 24 HOURS ON DAY 1, 3G/M2 OVER 2 HRS EVERY 12 HR ON DAY 2, 3
     Route: 042
  7. METHYLPREDNISOLONE. [Suspect]
     Active Substance: METHYLPREDNISOLONE
     Indication: ACUTE LYMPHOCYTIC LEUKAEMIA
     Dosage: ON DAY 1 TO 3 (6 DOSES)
     Route: 042
  8. METHOTREXATE [Suspect]
     Active Substance: METHOTREXATE
     Indication: ACUTE LYMPHOCYTIC LEUKAEMIA
     Dosage: OVER 24 HOURS ON DAY 1
     Route: 042
  9. CYCLOPHOSPHAMIDE. [Suspect]
     Active Substance: CYCLOPHOSPHAMIDE
     Indication: ACUTE LYMPHOCYTIC LEUKAEMIA
     Dosage: OVER 12 HOURS FOR 6 DOSES ON DAY 1-3
     Route: 042

REACTIONS (2)
  - Product use issue [Unknown]
  - Infection [Fatal]
